FAERS Safety Report 5266514-X (Version None)
Quarter: 2007Q1

REPORT INFORMATION
  Report Type: 
  Country: None (occurrence: None)
  Receive Date: 20070315
  Receipt Date: 20070305
  Transmission Date: 20070707
  Serious: Yes (Hospitalization, Other)
  Sender: FDA-Public Use
  Company Number: CA-ELI_LILLY_AND_COMPANY-CA200702001473

PATIENT
  Age: 82 Year
  Sex: Female

DRUGS (13)
  1. FORTEO [Suspect]
     Indication: OSTEOPOROSIS
     Dosage: 20 UG, DAILY (1/D)
     Route: 058
     Dates: start: 20050804, end: 20070202
  2. WARFARIN SODIUM [Concomitant]
     Dosage: UNK, UNK
  3. FUROSEMIDE [Concomitant]
     Dosage: 40 MG, DAILY (1/D)
  4. PREDNISONE [Concomitant]
     Dosage: 10 MG, DAILY (1/D)
  5. RANITIDINE [Concomitant]
     Dosage: 300 MG, 2/D
  6. LANOXIN [Concomitant]
     Dosage: 0.0625 MG, UNK
  7. FERROUS FUMARATE [Concomitant]
     Dosage: 300 MG, 2/D
  8. METOPROLOL SUCCINATE [Concomitant]
     Dosage: UNK, UNK
  9. CALCIUM [Concomitant]
     Dosage: UNK, UNK
  10. ENBREL [Concomitant]
     Dosage: UNK, WEEKLY (1/W)
  11. VITAMIN D [Concomitant]
  12. VENTOLIN [Concomitant]
  13. ATROVENT [Concomitant]
     Dosage: 10 MG, DAILY (1/D)

REACTIONS (3)
  - CHRONIC OBSTRUCTIVE PULMONARY DISEASE [None]
  - HAEMATOMA [None]
  - MALAISE [None]
